FAERS Safety Report 19922095 (Version 5)
Quarter: 2024Q2

REPORT INFORMATION
  Report Type: Report from Study
  Country: US (occurrence: US)
  Receive Date: 20211006
  Receipt Date: 20240530
  Transmission Date: 20240715
  Serious: Yes (Other)
  Sender: FDA-Public Use
  Company Number: US-NOVARTISPH-NVSC2021US221559

PATIENT
  Sex: Female

DRUGS (3)
  1. MYFORTIC [Suspect]
     Active Substance: MYCOPHENOLATE SODIUM
     Indication: Product used for unknown indication
     Dosage: 360 MG, BID
     Route: 065
     Dates: start: 2019
  2. PANTOPRAZOLE [Concomitant]
     Active Substance: PANTOPRAZOLE
     Indication: Product used for unknown indication
     Dosage: 40 MG, QD
     Route: 065
  3. LEVOTHYROXINE [Concomitant]
     Active Substance: LEVOTHYROXINE\LEVOTHYROXINE SODIUM
     Indication: Product used for unknown indication
     Dosage: 25 UG (MCG)
     Route: 065

REACTIONS (16)
  - Autoimmune disorder [Unknown]
  - Interstitial lung disease [Not Recovered/Not Resolved]
  - Oesophageal dilatation [Unknown]
  - Urinary incontinence [Unknown]
  - Dyspepsia [Unknown]
  - Reflux gastritis [Unknown]
  - Bladder disorder [Unknown]
  - COVID-19 [Unknown]
  - Food poisoning [Unknown]
  - Product supply issue [Unknown]
  - Drug ineffective [Unknown]
  - Abdominal pain upper [Unknown]
  - Gastritis [Unknown]
  - Metaplasia [Unknown]
  - Gastrointestinal disorder [Unknown]
  - Lung disorder [Unknown]
